FAERS Safety Report 4583052-8 (Version None)
Quarter: 2005Q1

REPORT INFORMATION
  Report Type: 
  Country: None (occurrence: None)
  Receive Date: 20050125
  Receipt Date: 20041115
  Transmission Date: 20050727
  Serious: No
  Sender: FDA-Public Use
  Company Number: US_0411108411

PATIENT
  Age: 84 Year
  Sex: Female
  Weight: 56 kg

DRUGS (2)
  1. FORTEO [Suspect]
     Indication: OSTEOPOROSIS
     Dosage: 20 UG DAY
     Dates: start: 20041027
  2. TYLENOL (CAPLET) [Concomitant]

REACTIONS (4)
  - AGITATION [None]
  - ANXIETY [None]
  - CONTUSION [None]
  - NERVOUSNESS [None]
